FAERS Safety Report 6452912-5 (Version None)
Quarter: 2009Q4

REPORT INFORMATION
  Report Type: 
  Country: None (occurrence: None)
  Receive Date: 20091124
  Receipt Date: 20090121
  Transmission Date: 20100525
  Serious: No
  Sender: FDA-Public Use
  Company Number: US-ABBOTT-09P-163-0499286-00

PATIENT
  Sex: Female
  Weight: 76.726 kg

DRUGS (1)
  1. TRICOR [Suspect]
     Indication: HIGH DENSITY LIPOPROTEIN DECREASED
     Route: 048
     Dates: start: 20070101, end: 20080901

REACTIONS (2)
  - PAIN IN EXTREMITY [None]
  - SENSORY DISTURBANCE [None]
